FAERS Safety Report 16084866 (Version 1)
Quarter: 2019Q1

REPORT INFORMATION
  Report Type: Spontaneous
  Country: CA (occurrence: CA)
  Receive Date: 20190318
  Receipt Date: 20190318
  Transmission Date: 20190418
  Serious: Yes (Hospitalization, Other)
  Sender: FDA-Public Use
  Company Number: CA-PFIZER INC-2019109452

PATIENT
  Age: 77 Year
  Sex: Male
  Weight: 62 kg

DRUGS (15)
  1. TINZAPARIN [Concomitant]
     Active Substance: TINZAPARIN
     Dosage: UNK
  2. HYDROMORPHONE [Concomitant]
     Active Substance: HYDROMORPHONE
     Dosage: UNK
  3. METOPROLOL. [Concomitant]
     Active Substance: METOPROLOL
     Dosage: UNK
  4. DAPTOMYCIN. [Suspect]
     Active Substance: DAPTOMYCIN
     Indication: ENTEROCOCCUS TEST POSITIVE
     Dosage: 700 MG, 1X/DAY
     Route: 042
  5. PANTOPRAZOLE [Concomitant]
     Active Substance: PANTOPRAZOLE
     Dosage: UNK
  6. PREGABALIN. [Concomitant]
     Active Substance: PREGABALIN
     Dosage: UNK
  7. VANCOMYCIN [Concomitant]
     Active Substance: VANCOMYCIN
     Dosage: UNK
  8. FLUCONAZOLE. [Suspect]
     Active Substance: FLUCONAZOLE
     Dosage: UNK
  9. FUROSEMIDE. [Suspect]
     Active Substance: FUROSEMIDE
     Dosage: UNK
  10. MIRTAZAPINE. [Concomitant]
     Active Substance: MIRTAZAPINE
     Dosage: UNK
  11. SPIRIVA [Concomitant]
     Active Substance: TIOTROPIUM BROMIDE MONOHYDRATE
     Dosage: UNK
  12. DAPTOMYCIN. [Suspect]
     Active Substance: DAPTOMYCIN
     Indication: AMPUTATION
  13. ALLOPURINOL. [Suspect]
     Active Substance: ALLOPURINOL
     Dosage: UNK
  14. AMLODIPINE [Concomitant]
     Active Substance: AMLODIPINE BESYLATE
     Dosage: UNK
  15. SALBUTAMOL [Concomitant]
     Active Substance: ALBUTEROL
     Dosage: UNK

REACTIONS (1)
  - Eosinophilia [Recovered/Resolved]
